FAERS Safety Report 9057600 (Version 1)
Quarter: 2013Q1

REPORT INFORMATION
  Report Type: Spontaneous
  Country: FR (occurrence: FR)
  Receive Date: 20130204
  Receipt Date: 20130204
  Transmission Date: 20140127
  Serious: Yes (Death, Hospitalization)
  Sender: FDA-Public Use
  Company Number: FR-PFIZER INC-2013037624

PATIENT
  Age: 65 Year
  Sex: Male

DRUGS (15)
  1. FLUOROURACILE PFIZER [Suspect]
     Indication: EPIGLOTTIC CARCINOMA
     Dosage: 1250 MG FROM DAY 1 TO DAY 5
     Route: 042
     Dates: start: 20120829, end: 20121012
  2. TAXOTERE [Suspect]
     Indication: EPIGLOTTIC CARCINOMA
     Dosage: 125 MG ON DAY 1
     Route: 042
     Dates: start: 20120829, end: 20121008
  3. CISPLATINE MYLAN [Suspect]
     Indication: EPIGLOTTIC CARCINOMA
     Dosage: 125 MG ON DAY 1
     Route: 042
     Dates: start: 20120829, end: 20121008
  4. NEULASTA [Suspect]
     Dosage: 6 MG, ON DAY 6
     Route: 058
     Dates: start: 20120903, end: 20121013
  5. SOLUPRED [Concomitant]
     Dosage: 50 MG, FROM DAY -1 TO DAY 2
  6. SOLU-MEDROL [Concomitant]
     Dosage: 80 MG, ON DAY 1
  7. EMEND [Concomitant]
     Dosage: 125 MG ON DAY 1
  8. EMEND [Concomitant]
     Dosage: 80 MG ON DAY 2 AND DAY 3
  9. ZOPHREN [Concomitant]
     Dosage: 1 DF ON DAY 1
  10. ZOPHREN [Concomitant]
     Dosage: 1 DF FROM DAY 2 TO DAY 5
  11. XANAX [Concomitant]
     Dosage: ONE TABLET FROM DAY 1 TO DAY 5
  12. FORLAX [Concomitant]
     Dosage: FROM DAY 1 TO DAY 5
  13. DUROGESIC [Concomitant]
     Dosage: UNK
  14. LEXOMIL [Concomitant]
     Dosage: UNK
  15. EXACYL [Concomitant]
     Dosage: UNK

REACTIONS (1)
  - Pulmonary fibrosis [Fatal]
